FAERS Safety Report 9201677 (Version 2)
Quarter: 2013Q2

REPORT INFORMATION
  Report Type: Spontaneous
  Country: TH (occurrence: TH)
  Receive Date: 20130401
  Receipt Date: 20130412
  Transmission Date: 20140414
  Serious: Yes (Hospitalization, Other)
  Sender: FDA-Public Use
  Company Number: PHHY2013TH031319

PATIENT
  Sex: Male

DRUGS (1)
  1. ACLASTA [Suspect]
     Dosage: UNK UKN, UNK
     Route: 042
     Dates: start: 20130327

REACTIONS (7)
  - Cellulitis [Recovered/Resolved]
  - Pyrexia [Unknown]
  - Erythema [Unknown]
  - Feeling hot [Unknown]
  - Pain in extremity [Unknown]
  - Local swelling [Unknown]
  - Infusion site extravasation [Unknown]
